FAERS Safety Report 5278168-7 (Version None)
Quarter: 2007Q1

REPORT INFORMATION
  Report Type: 
  Country: None (occurrence: None)
  Receive Date: 20061213
  Receipt Date: 20060313
  Transmission Date: 20070707
  Serious: No
  Sender: FDA-Public Use
  Company Number: 2006UW04059

PATIENT
  Age: 38 Year
  Sex: Male

DRUGS (9)
  1. SEROQUEL [Suspect]
     Indication: POST-TRAUMATIC STRESS DISORDER
     Dates: start: 20051101, end: 20060214
  2. EFFEXOR [Suspect]
     Indication: ANXIETY
     Dates: start: 20050924, end: 20060214
  3. EFFEXOR [Suspect]
     Indication: POST-TRAUMATIC STRESS DISORDER
     Dates: start: 20050924, end: 20060214
  4. TRUVADA [Concomitant]
  5. REYATAZ [Concomitant]
  6. NORVIR [Concomitant]
  7. ACYCLOVIR [Concomitant]
  8. KLONOPIN [Concomitant]
  9. AVAPRO [Concomitant]

REACTIONS (1)
  - PARTIAL SEIZURES [None]
